FAERS Safety Report 12538147 (Version 5)
Quarter: 2017Q4

REPORT INFORMATION
  Report Type: Spontaneous
  Country: US (occurrence: US)
  Receive Date: 20160707
  Receipt Date: 20171122
  Transmission Date: 20180320
  Serious: Yes (Hospitalization, Other)
  Sender: FDA-Public Use
  Company Number: US-BIOMARINAP-US-2016-109332

PATIENT
  Age: 14 Year
  Sex: Female

DRUGS (4)
  1. ALDURAZYME [Suspect]
     Active Substance: LARONIDASE
     Dosage: UNK
     Route: 041
     Dates: end: 20160314
  2. ALDURAZYME [Suspect]
     Active Substance: LARONIDASE
     Indication: MUCOPOLYSACCHARIDOSIS I
     Dosage: UNK
     Route: 041
     Dates: start: 20080310
  3. ALDURAZYME [Suspect]
     Active Substance: LARONIDASE
     Dosage: 23.2 MG, UNK
     Route: 041
     Dates: end: 20160815
  4. ALDURAZYME [Suspect]
     Active Substance: LARONIDASE
     Dosage: 23.3 MG, UNK
     Route: 041
     Dates: start: 2016

REACTIONS (15)
  - Loss of consciousness [Unknown]
  - Carpal tunnel syndrome [Unknown]
  - Pain [Unknown]
  - Feeling cold [Unknown]
  - Inguinal hernia [Unknown]
  - Joint stiffness [Unknown]
  - Spinal column stenosis [Unknown]
  - Sleep apnoea syndrome [Unknown]
  - Complication associated with device [Unknown]
  - Surgery [Unknown]
  - Malaise [Unknown]
  - Dyspnoea [Unknown]
  - Malaise [Recovering/Resolving]
  - Blood pressure decreased [Recovered/Resolved]
  - Device issue [Unknown]

NARRATIVE: CASE EVENT DATE: 20160114
